FAERS Safety Report 5105007-7 (Version None)
Quarter: 2006Q3

REPORT INFORMATION
  Report Type: 
  Country: None (occurrence: None)
  Receive Date: 20060911
  Receipt Date: 20060828
  Transmission Date: 20061208
  Serious: Yes (Other)
  Sender: FDA-Public Use
  Company Number: 2006104638

PATIENT
  Sex: Female

DRUGS (2)
  1. DILANTIN [Suspect]
     Indication: CONVULSION
     Dosage: 330 MG,
  2. DILANTIN [Suspect]
     Indication: EPILEPSY
     Dosage: 330 MG,

REACTIONS (1)
  - CONVULSION [None]
